FAERS Safety Report 16677672 (Version 6)
Quarter: 2021Q1

REPORT INFORMATION
  Report Type: Report from Study
  Country: FR (occurrence: FR)
  Receive Date: 20190807
  Receipt Date: 20210329
  Transmission Date: 20210419
  Serious: Yes (Other)
  Sender: FDA-Public Use
  Company Number: FR-JAZZ-2019-FR-010819

PATIENT
  Age: 42 Year
  Sex: Female
  Weight: 56 kg

DRUGS (5)
  1. DIFFU K [Concomitant]
     Active Substance: POTASSIUM CHLORIDE
     Indication: HYPOKALAEMIA
     Dosage: 3600
     Route: 048
     Dates: end: 20190309
  2. DEFITELIO [Suspect]
     Active Substance: DEFIBROTIDE SODIUM
     Indication: VENOOCCLUSIVE LIVER DISEASE
     Dosage: 25.8 MG/KG
     Route: 042
     Dates: start: 20180825, end: 20180831
  3. HYDREA [Concomitant]
     Active Substance: HYDROXYUREA
     Indication: CHEMOTHERAPY
     Dosage: UNK
     Route: 048
     Dates: end: 20190309
  4. PHENOXYMETHYLPENICILLIN [Concomitant]
     Active Substance: PENICILLIN V
     Indication: ANTIBIOTIC PROPHYLAXIS
     Dosage: 2 MVI
     Route: 048
     Dates: end: 20190309
  5. ZYLORIC [Concomitant]
     Active Substance: ALLOPURINOL
     Indication: PROPHYLAXIS
     Dosage: 300 MG
     Route: 048
     Dates: end: 20190309

REACTIONS (3)
  - Subdural haematoma [Unknown]
  - Overdose [Unknown]
  - Seizure [Unknown]

NARRATIVE: CASE EVENT DATE: 20180825
